FAERS Safety Report 18216228 (Version 9)
Quarter: 2021Q2

REPORT INFORMATION
  Report Type: Spontaneous
  Country: US (occurrence: US)
  Receive Date: 20200901
  Receipt Date: 20210623
  Transmission Date: 20210717
  Serious: Yes (Hospitalization, Other)
  Sender: FDA-Public Use
  Company Number: US-GLAXOSMITHKLINE-US2020AMR174171

PATIENT
  Sex: Female

DRUGS (10)
  1. ZEJULA [Suspect]
     Active Substance: NIRAPARIB
     Dosage: 100 MG, QD
  2. ZEJULA [Suspect]
     Active Substance: NIRAPARIB
     Dosage: 100 MG, QD
     Route: 048
  3. ZEJULA [Suspect]
     Active Substance: NIRAPARIB
     Dosage: 100 MG, QD
     Route: 048
  4. ZEJULA [Suspect]
     Active Substance: NIRAPARIB
     Dosage: 100 MG, QD
  5. MAGNESIUM [Concomitant]
     Active Substance: MAGNESIUM
     Dosage: UNK
  6. ZEJULA [Suspect]
     Active Substance: NIRAPARIB
     Dosage: 100 MG, QD
     Route: 048
  7. OXYCODONE [Concomitant]
     Active Substance: OXYCODONE
     Indication: PRODUCT USED FOR UNKNOWN INDICATION
     Dosage: 5 MG, AS NEEDED
  8. ZEJULA [Suspect]
     Active Substance: NIRAPARIB
     Indication: OVARIAN CANCER
     Dosage: 200 MG, QD
     Route: 048
     Dates: start: 20200813
  9. ZEJULA [Suspect]
     Active Substance: NIRAPARIB
     Dosage: 100 MG, QD
     Route: 048
  10. MAGNESIUM [Concomitant]
     Active Substance: MAGNESIUM
     Indication: PRODUCT USED FOR UNKNOWN INDICATION
     Dosage: UNK

REACTIONS (14)
  - Platelet disorder [Unknown]
  - Discomfort [Not Recovered/Not Resolved]
  - Insomnia [Unknown]
  - Dry mouth [Unknown]
  - Cognitive disorder [Unknown]
  - Peripheral coldness [Not Recovered/Not Resolved]
  - Renal atrophy [Unknown]
  - Pain [Recovered/Resolved]
  - Blood creatinine increased [Recovered/Resolved]
  - Product dose omission issue [Unknown]
  - Renal artery stenosis [Unknown]
  - Blood count abnormal [Unknown]
  - Malaise [Unknown]
  - Renal vessel disorder [Not Recovered/Not Resolved]
